FAERS Safety Report 4825214-8 (Version None)
Quarter: 2005Q4

REPORT INFORMATION
  Report Type: 
  Country: None (occurrence: None)
  Receive Date: 20051109
  Receipt Date: 20051026
  Transmission Date: 20060501
  Serious: Yes (Other)
  Sender: FDA-Public Use
  Company Number: 219186

PATIENT
  Sex: 0

DRUGS (5)
  1. MABTHERA (RITUXIMAB) CONC FOR SOLUTION FOR INFUSION [Suspect]
     Indication: CASTLEMAN'S DISEASE
  2. ABACAVIR (ABACAVIR SUCCINATE) [Concomitant]
  3. LAMIVUDINE [Concomitant]
  4. ZIDOVUDINE [Concomitant]
  5. VINBLASTINE SULFATE [Concomitant]

REACTIONS (2)
  - CONDITION AGGRAVATED [None]
  - KAPOSI'S SARCOMA [None]
